FAERS Safety Report 14091833 (Version 1)
Quarter: 2017Q4

REPORT INFORMATION
  Report Type: Spontaneous
  Country: GR (occurrence: GR)
  Receive Date: 20171016
  Receipt Date: 20171016
  Transmission Date: 20180321
  Serious: Yes (Hospitalization, Other)
  Sender: FDA-Public Use
  Company Number: PHHY2017GR139856

PATIENT
  Age: 80 Year
  Sex: Female

DRUGS (2)
  1. ENTRESTO [Suspect]
     Active Substance: SACUBITRIL\VALSARTAN
     Indication: CARDIAC FAILURE
     Dosage: 50 MG (24/26 MG), UNK
     Route: 065
  2. ENTRESTO [Suspect]
     Active Substance: SACUBITRIL\VALSARTAN
     Dosage: 100 MG (49/51 MG), UNK
     Route: 065

REACTIONS (11)
  - Oedema [Unknown]
  - Gastrointestinal disorder [Unknown]
  - Gastrointestinal motility disorder [Not Recovered/Not Resolved]
  - Renal impairment [Recovered/Resolved]
  - Dyspnoea [Unknown]
  - Urine output decreased [Unknown]
  - Cardiac failure [Unknown]
  - Dehydration [Recovered/Resolved]
  - Joint swelling [Unknown]
  - Peripheral swelling [Unknown]
  - Asthenia [Unknown]
